FAERS Safety Report 25802287 (Version 1)
Quarter: 2025Q3

REPORT INFORMATION
  Report Type: Spontaneous
  Country: US (occurrence: None)
  Receive Date: 20250912
  Receipt Date: 20250912
  Transmission Date: 20251020
  Serious: Yes (Death)
  Sender: FDA-CTU
  Company Number: None

PATIENT
  Age: 76 Year
  Sex: Male

DRUGS (14)
  1. OFEV [Suspect]
     Active Substance: NINTEDANIB
     Indication: Idiopathic pulmonary fibrosis
     Dosage: 150MG BID ORAL
     Route: 048
     Dates: start: 20200221, end: 20250627
  2. torsemide, [Concomitant]
  3. simvastatin, [Concomitant]
  4. finasteride, [Concomitant]
  5. potassium chloride, [Concomitant]
  6. pantoprazole, [Concomitant]
  7. albuterol BFA, [Concomitant]
  8. sennosides, [Concomitant]
  9. tamsulosin, [Concomitant]
  10. narcan, [Concomitant]
  11. lidocaine top cream [Concomitant]
  12. anusol HC , [Concomitant]
  13. atrovent nasal spray, [Concomitant]
  14. ASPIRIN [Concomitant]
     Active Substance: ASPIRIN
     Dosage: FREQUENCY : TWICE A DAY;?
     Route: 048

REACTIONS (2)
  - Confusional state [None]
  - Mental status changes [None]

NARRATIVE: CASE EVENT DATE: 20250627
